FAERS Safety Report 8387809-7 (Version None)
Quarter: 2012Q2

REPORT INFORMATION
  Report Type: 
  Country: None (occurrence: None)
  Receive Date: 20120525
  Receipt Date: 20120430
  Transmission Date: 20120825
  Serious: No
  Sender: FDA-Public Use
  Company Number: US-BRISTOL-MYERS SQUIBB COMPANY-16560716

PATIENT
  Age: 75 Year
  Sex: Male
  Weight: 71 kg

DRUGS (4)
  1. PREDNISONE TAB [Concomitant]
  2. IMUREL [Concomitant]
  3. KOMBIGLYZE XR [Suspect]
     Dosage: 1DF=2.5
     Dates: start: 20120401
  4. DIOVAN [Concomitant]

REACTIONS (1)
  - RENAL IMPAIRMENT [None]
